FAERS Safety Report 8767537 (Version 2)
Quarter: 2012Q4

REPORT INFORMATION
  Report Type: 
  Country: ES (occurrence: ES)
  Receive Date: 20120904
  Receipt Date: 20121003
  Transmission Date: 20130627
  Serious: Yes (Hospitalization, Other)
  Sender: FDA-Public Use
  Company Number: ES-ACTELION-A-CH2012-70566

PATIENT
  Age: 21 Year
  Sex: Male

DRUGS (4)
  1. ZAVESCA [Suspect]
     Indication: NIEMANN-PICK DISEASE
     Dosage: 200 mg, tid
     Route: 049
     Dates: start: 200511, end: 201208
  2. OXCARBAZEPINE [Concomitant]
     Dosage: 600 mg, bid
     Dates: start: 2002
  3. LAMOTRIGINE [Concomitant]
     Dosage: 200 mg, bid
     Dates: start: 2007
  4. PHENYTOIN [Concomitant]
     Dosage: 125 mg, bid
     Dates: start: 2010

REACTIONS (5)
  - Intestinal obstruction [Recovered/Resolved with Sequelae]
  - Volvulus [Recovered/Resolved with Sequelae]
  - Intestinal ischaemia [Recovered/Resolved with Sequelae]
  - Intestinal resection [Recovered/Resolved with Sequelae]
  - Short-bowel syndrome [Recovered/Resolved with Sequelae]
